FAERS Safety Report 5336724-1 (Version None)
Quarter: 2007Q2

REPORT INFORMATION
  Report Type: 
  Country: None (occurrence: None)
  Receive Date: 20070529
  Receipt Date: 20070517
  Transmission Date: 20071010
  Serious: Yes (Hospitalization, Other)
  Sender: FDA-Public Use
  Company Number: PHMT2006CA00929

PATIENT
  Age: 75 Year
  Sex: Female

DRUGS (7)
  1. EXELON [Suspect]
     Indication: DEMENTIA ALZHEIMER'S TYPE
     Route: 048
     Dates: start: 20051013, end: 20060203
  2. EXELON [Suspect]
     Dosage: 6 MG, QD
     Route: 048
     Dates: start: 20060210
  3. OPHTHALMOLOGICALS [Concomitant]
  4. ASPIRIN [Concomitant]
     Dosage: 80 MG
  5. SERAX [Concomitant]
     Dosage: 10 MG PRN
  6. TYLENOL [Concomitant]
     Dosage: UNK, PRN
  7. BRIMONIDINE TARTRATE [Concomitant]

REACTIONS (10)
  - ACTIVATED PARTIAL THROMBOPLASTIN TIME SHORTENED [None]
  - ARTERIOSCLEROSIS [None]
  - ATRIAL TACHYCARDIA [None]
  - ATRIOVENTRICULAR EXTRASYSTOLES [None]
  - BRADYARRHYTHMIA [None]
  - CAROTID ARTERY STENOSIS [None]
  - CEREBRAL ISCHAEMIA [None]
  - COMPUTERISED TOMOGRAM ABNORMAL [None]
  - RED CELL DISTRIBUTION WIDTH INCREASED [None]
  - SYNCOPE [None]
